FAERS Safety Report 5095883-9 (Version None)
Quarter: 2006Q3

REPORT INFORMATION
  Report Type: 
  Country: None (occurrence: None)
  Receive Date: 20060727
  Receipt Date: 20060516
  Transmission Date: 20061208
  Serious: No
  Sender: FDA-Public Use
  Company Number: FACT0600255

PATIENT
  Age: 52 Year
  Sex: Female
  Weight: 68 kg

DRUGS (3)
  1. FACTIVE [Suspect]
     Indication: RESPIRATORY TRACT INFECTION BACTERIAL
     Dosage: 320 MG, QD, ORAL
     Route: 048
  2. HYZAAR [Concomitant]
  3. PREMPRO [Concomitant]

REACTIONS (4)
  - ABDOMINAL PAIN [None]
  - CHROMATURIA [None]
  - DIARRHOEA [None]
  - URINE ODOUR ABNORMAL [None]
